FAERS Safety Report 7050111-X (Version None)
Quarter: 2010Q4

REPORT INFORMATION
  Report Type: 
  Country: None (occurrence: None)
  Receive Date: 20101018
  Receipt Date: 20101004
  Transmission Date: 20110411
  Serious: Yes (Other)
  Sender: FDA-Public Use
  Company Number: PHHY2010JP65156

PATIENT
  Age: 30 Year
  Sex: Male

DRUGS (5)
  1. TEGRETOL [Suspect]
     Indication: EPILEPSY
     Dosage: UNK
  2. DEPAKENE [Concomitant]
     Indication: EPILEPSY
     Dosage: UNK
  3. ZONISAMIDE [Concomitant]
     Indication: EPILEPSY
     Dosage: UNK
  4. VPA [Concomitant]
     Indication: EPILEPSY
     Dosage: 1200 MG DAILY
  5. GABAPENTIN [Concomitant]
     Dosage: UNK

REACTIONS (7)
  - DECREASED APPETITE [None]
  - DEPRESSION [None]
  - ELECTROENCEPHALOGRAM ABNORMAL [None]
  - EPILEPSY [None]
  - MEMORY IMPAIRMENT [None]
  - MYOCLONUS [None]
  - WEIGHT DECREASED [None]
